FAERS Safety Report 23083438 (Version 1)
Quarter: 2023Q4

REPORT INFORMATION
  Report Type: Spontaneous
  Country: IT (occurrence: IT)
  Receive Date: 20231019
  Receipt Date: 20231019
  Transmission Date: 20240110
  Serious: Yes (Other)
  Sender: FDA-Public Use
  Company Number: None

PATIENT
  Age: 47 Year
  Sex: Female

DRUGS (3)
  1. ARAVA [Suspect]
     Active Substance: LEFLUNOMIDE
     Indication: Psoriatic arthropathy
     Dosage: 20 MG, QD (100 MG/DAY FOR 3 DAYS. MAINTENANCE)
     Route: 048
     Dates: start: 20230601, end: 20230925
  2. ARAVA [Suspect]
     Active Substance: LEFLUNOMIDE
     Dosage: 100 MG, QD
     Route: 048
  3. ERELZI [Suspect]
     Active Substance: ETANERCEPT-SZZS
     Indication: Psoriatic arthropathy
     Dosage: 50 MG, QW
     Route: 058
     Dates: start: 20230324, end: 20230601

REACTIONS (2)
  - Psoriatic arthropathy [Not Recovered/Not Resolved]
  - Paradoxical psoriasis [Not Recovered/Not Resolved]

NARRATIVE: CASE EVENT DATE: 20230601
